FAERS Safety Report 10204919 (Version 1)
Quarter: 2014Q2

REPORT INFORMATION
  Report Type: Spontaneous
  Country: US (occurrence: US)
  Receive Date: 20140529
  Receipt Date: 20140529
  Transmission Date: 20141212
  Serious: Yes (Other)
  Sender: FDA-Public Use
  Company Number: US-ASTRAZENECA-2014SE35342

PATIENT
  Age: 28337 Day
  Sex: Female
  Weight: 83.5 kg

DRUGS (1)
  1. BRILINTA [Suspect]
     Indication: STENT PLACEMENT
     Route: 048
     Dates: start: 20140201

REACTIONS (5)
  - Arteriosclerosis coronary artery [Unknown]
  - Alopecia [Unknown]
  - Groin pain [Unknown]
  - Body height decreased [Unknown]
  - Contusion [Not Recovered/Not Resolved]
